FAERS Safety Report 12082362 (Version 2)
Quarter: 2016Q1

REPORT INFORMATION
  Report Type: Spontaneous
  Country: US (occurrence: US)
  Receive Date: 20160217
  Receipt Date: 20160302
  Transmission Date: 20160526
  Serious: Yes (Hospitalization)
  Sender: FDA-Public Use
  Company Number: US-BEH-2016058737

PATIENT
  Age: 49 Year
  Sex: Male
  Weight: 60 kg

DRUGS (24)
  1. LMX [Concomitant]
     Active Substance: LIDOCAINE
  2. ALBUTEROL. [Concomitant]
     Active Substance: ALBUTEROL
  3. CLOFAZIMINE [Concomitant]
     Active Substance: CLOFAZIMINE
  4. ZEMAIRA [Suspect]
     Active Substance: .ALPHA.1-PROTEINASE INHIBITOR HUMAN
     Dosage: 971 MG VIALS
     Route: 042
  5. AVELOX [Concomitant]
     Active Substance: MOXIFLOXACIN HYDROCHLORIDE
  6. TRAMADOL. [Concomitant]
     Active Substance: TRAMADOL
  7. IBUPROFEN. [Concomitant]
     Active Substance: IBUPROFEN
  8. SODIUM CHLORIDE. [Concomitant]
     Active Substance: SODIUM CHLORIDE
  9. GUAIFENESIN. [Concomitant]
     Active Substance: GUAIFENESIN
  10. ZEMAIRA [Suspect]
     Active Substance: .ALPHA.1-PROTEINASE INHIBITOR HUMAN
     Indication: ALPHA-1 ANTI-TRYPSIN DEFICIENCY
     Route: 042
  11. DIPHENHYDRAMINE. [Concomitant]
     Active Substance: DIPHENHYDRAMINE
  12. EPIPEN [Concomitant]
     Active Substance: EPINEPHRINE
  13. VITAMIN B12 [Concomitant]
     Active Substance: CYANOCOBALAMIN
  14. HEPARIN [Concomitant]
     Active Substance: HEPARIN SODIUM
  15. GABAPENTIN. [Concomitant]
     Active Substance: GABAPENTIN
  16. OMEPRAZOLE. [Concomitant]
     Active Substance: OMEPRAZOLE
  17. VITAMIN B-6 [Concomitant]
     Active Substance: PYRIDOXINE
  18. XANAX [Concomitant]
     Active Substance: ALPRAZOLAM
  19. PROBIOTIC [Concomitant]
     Active Substance: PROBIOTICS NOS
  20. PREDNISONE. [Concomitant]
     Active Substance: PREDNISONE
  21. SPIRIVA [Concomitant]
     Active Substance: TIOTROPIUM BROMIDE MONOHYDRATE
  22. AMIKACIN [Concomitant]
     Active Substance: AMIKACIN
  23. RIFABUTIN. [Concomitant]
     Active Substance: RIFABUTIN
  24. VITAMIN D3 [Concomitant]
     Active Substance: CHOLECALCIFEROL

REACTIONS (2)
  - Respiratory distress [Recovered/Resolved]
  - Respiratory tract infection [Recovered/Resolved]

NARRATIVE: CASE EVENT DATE: 20160128
